FAERS Safety Report 23930351 (Version 4)
Quarter: 2024Q3

REPORT INFORMATION
  Report Type: Spontaneous
  Country: US (occurrence: US)
  Receive Date: 20240602
  Receipt Date: 20240729
  Transmission Date: 20241017
  Serious: No
  Sender: SANOFI AVENTIS
  Company Number: US-SA-SAC20240527000990

PATIENT
  Age: 55 Year
  Sex: Male

DRUGS (1)
  1. DUPIXENT [Suspect]
     Active Substance: DUPILUMAB
     Indication: Dermatitis atopic
     Dosage: 300 MG, QOW
     Route: 058
     Dates: start: 20240401

REACTIONS (10)
  - Dry skin [Unknown]
  - Brain fog [Unknown]
  - Nausea [Unknown]
  - Anxiety [Unknown]
  - Depression [Unknown]
  - Ear congestion [Unknown]
  - Ear pain [Unknown]
  - Fatigue [Unknown]
  - Dizziness [Unknown]
  - Arthralgia [Unknown]

NARRATIVE: CASE EVENT DATE: 20240101
